FAERS Safety Report 6906283-8 (Version None)
Quarter: 2010Q3

REPORT INFORMATION
  Report Type: 
  Country: None (occurrence: None)
  Receive Date: 20100804
  Receipt Date: 20100802
  Transmission Date: 20110219
  Serious: Yes (Other)
  Sender: FDA-Public Use
  Company Number: AU-ROXANE LABORATORIES, INC.-2010-RO-00946RO

PATIENT
  Age: 56 Year
  Sex: Male

DRUGS (2)
  1. AMLODIPINE [Suspect]
     Indication: HYPERTENSION
     Dosage: 10 MG
  2. LISINOPRIL [Suspect]
     Indication: HYPERTENSION
     Dosage: 10 MG

REACTIONS (4)
  - HYPOKALAEMIA [None]
  - NODULE [None]
  - PRIMARY HYPERALDOSTERONISM [None]
  - URINE POTASSIUM INCREASED [None]
